FAERS Safety Report 6690593-6 (Version None)
Quarter: 2010Q2

REPORT INFORMATION
  Report Type: 
  Country: None (occurrence: None)
  Receive Date: 20100421
  Receipt Date: 20100413
  Transmission Date: 20101027
  Serious: Yes (Other)
  Sender: FDA-Public Use
  Company Number: B0645680A

PATIENT
  Sex: Female

DRUGS (3)
  1. AUGMENTIN '125' [Suspect]
     Indication: CELLULITIS
     Dosage: 750MG PER DAY
     Route: 048
     Dates: start: 20090802, end: 20090813
  2. CALONAL [Concomitant]
     Indication: ANALGESIC THERAPY
     Route: 048
     Dates: start: 20090802
  3. MUCOSTA [Concomitant]
     Route: 048
     Dates: start: 20090802

REACTIONS (2)
  - OEDEMA PERIPHERAL [None]
  - RASH [None]
